FAERS Safety Report 8521983-4 (Version None)
Quarter: 2012Q3

REPORT INFORMATION
  Report Type: 
  Country: None (occurrence: None)
  Receive Date: 20120719
  Receipt Date: 20120712
  Transmission Date: 20120928
  Serious: Yes (Hospitalization, Disabling, Other)
  Sender: FDA-Public Use
  Company Number: US-009507513-1201USA00807

PATIENT

DRUGS (10)
  1. VITAMIN D (UNSPECIFIED) [Concomitant]
     Dosage: 400-800
     Dates: start: 20020701, end: 20070801
  2. FOSAMAX [Suspect]
     Indication: OSTEOPOROSIS
  3. ACTONEL [Suspect]
     Indication: OSTEOPENIA
     Dosage: 35 MG, UNK
     Route: 048
     Dates: start: 20070101, end: 20081101
  4. ASCORBIC ACID [Concomitant]
     Dates: start: 20030301, end: 20091001
  5. CALCIUM CARBONATE [Concomitant]
     Dosage: 600 MG, UNK
     Dates: start: 19900101
  6. MK-9278 [Concomitant]
     Dosage: UNK UNK, QD
     Dates: start: 19700101
  7. VITAMIN E [Concomitant]
     Dosage: 400 IU, UNK
     Dates: start: 20030301, end: 20091001
  8. ACTONEL [Suspect]
     Indication: OSTEOPOROSIS
     Dosage: 150 MG, UNK
     Route: 048
     Dates: start: 20081201, end: 20100301
  9. CALCIUM (UNSPECIFIED) [Concomitant]
     Dosage: 600-1500
     Dates: start: 19900101, end: 20060801
  10. FOSAMAX [Suspect]
     Indication: OSTEOPENIA
     Dosage: 70 MG, QW
     Route: 048
     Dates: start: 20020731, end: 20061201

REACTIONS (19)
  - FEMUR FRACTURE [None]
  - RADIUS FRACTURE [None]
  - POSTMENOPAUSAL HAEMORRHAGE [None]
  - CHONDROPATHY [None]
  - FRACTURE NONUNION [None]
  - HYPERCALCIURIA [None]
  - JOINT DISLOCATION [None]
  - VEIN DISORDER [None]
  - MENOPAUSE [None]
  - OSTEOMA [None]
  - BONE DENSITY DECREASED [None]
  - FALL [None]
  - FOOT FRACTURE [None]
  - ARTHRALGIA [None]
  - DYSLIPIDAEMIA [None]
  - HYPERTENSION [None]
  - HUMERUS FRACTURE [None]
  - LIGAMENT RUPTURE [None]
  - BREAST CYST [None]
